FAERS Safety Report 10411790 (Version 1)
Quarter: 2014Q2

REPORT INFORMATION
  Report Type: Spontaneous
  Country: US (occurrence: None)
  Receive Date: 20140604
  Receipt Date: 20140604
  Transmission Date: 20141212
  Serious: No
  Sender: FDA-Public Use
  Company Number: 163-POMAL-14045179

PATIENT
  Age: 57 Year
  Sex: Male
  Weight: 131.54 kg

DRUGS (14)
  1. POMALYST [Suspect]
     Indication: PLASMA CELL MYELOMA
     Route: 048
     Dates: start: 20130827
  2. DEXAMETHASONE [Concomitant]
  3. ACYCLOVIR (ACICLOVIR) (ACICLOVIR) [Suspect]
  4. XARELTO (RIVAROXAB [Concomitant]
  5. NEXIUM (ESOMEPRAZOLE) [Concomitant]
  6. GABAPENTIN (GABAPENTIN) [Concomitant]
  7. NEUPOGEN (FILGRASTIM) [Concomitant]
  8. TAMIFLU (OSELTAMIVIR) [Concomitant]
  9. MUPIROCIN (MUPIROCIN) [Concomitant]
  10. AMIODARONE (AMIODARONE) [Concomitant]
  11. PRISTIQ (DESVENLAFAXINSUCCINATE) [Concomitant]
  12. FLUTICASONE PROPIONATE (FLUTISCASONE PROPIONATE) [Concomitant]
  13. METOPROLOL (METOPROLOL) [Concomitant]
  14. ZITHROMAX [Concomitant]

REACTIONS (2)
  - Ear pain [None]
  - Upper respiratory tract infection [None]
